FAERS Safety Report 7023430-0 (Version None)
Quarter: 2010Q3

REPORT INFORMATION
  Report Type: 
  Country: None (occurrence: None)
  Receive Date: 20100930
  Receipt Date: 20100920
  Transmission Date: 20110219
  Serious: Yes (Life-Threatening, Hospitalization)
  Sender: FDA-Public Use
  Company Number: US-WATSON-2010-12526

PATIENT
  Sex: Female
  Weight: 58.957 kg

DRUGS (1)
  1. FENTANYL-50 [Suspect]
     Indication: PAIN IN EXTREMITY
     Dosage: 1 PATCH Q 3 DAYS (USED ONLY 3 PATCHES)
     Route: 062
     Dates: start: 20081001, end: 20081001

REACTIONS (5)
  - APPLICATION SITE PAIN [None]
  - CARDIO-RESPIRATORY ARREST [None]
  - HYPERHIDROSIS [None]
  - OVERDOSE [None]
  - RESUSCITATION [None]
